FAERS Safety Report 5327805-7 (Version None)
Quarter: 2007Q2

REPORT INFORMATION
  Report Type: 
  Country: None (occurrence: None)
  Receive Date: 20070517
  Receipt Date: 20070514
  Transmission Date: 20071010
  Serious: Yes (Death)
  Sender: FDA-Public Use
  Company Number: US-JNJFOC-20061200447

PATIENT
  Age: 59 Year
  Sex: Male

DRUGS (3)
  1. LEVAQUIN [Suspect]
     Indication: BRONCHITIS
     Route: 048
     Dates: start: 20060727, end: 20060728
  2. ALBUTEROL [Suspect]
     Indication: BRONCHITIS
     Route: 065
  3. MUCINEX [Suspect]
     Indication: BRONCHITIS
     Route: 065

REACTIONS (1)
  - ARRHYTHMIA [None]
